FAERS Safety Report 18452376 (Version 1)
Quarter: 2020Q4

REPORT INFORMATION
  Report Type: Spontaneous
  Country: GB (occurrence: GB)
  Receive Date: 20201102
  Receipt Date: 20201102
  Transmission Date: 20210114
  Serious: Yes (Hospitalization, Other)
  Sender: FDA-Public Use
  Company Number: GB-BIO PRODUCTS LABORATORY LTD-2093507

PATIENT
  Age: 32 Year
  Sex: Female

DRUGS (1)
  1. GENERIC IVIG [Suspect]
     Active Substance: HUMAN IMMUNOGLOBULIN G
     Indication: TOXIC EPIDERMAL NECROLYSIS
     Route: 042

REACTIONS (4)
  - Vanishing bile duct syndrome [Recovered/Resolved with Sequelae]
  - Off label use [Recovered/Resolved with Sequelae]
  - Hepatitis [Recovered/Resolved with Sequelae]
  - Drug ineffective for unapproved indication [Recovered/Resolved with Sequelae]
